FAERS Safety Report 10806903 (Version 1)
Quarter: 2015Q1

REPORT INFORMATION
  Report Type: Report from Study
  Country: US (occurrence: US)
  Receive Date: 20150217
  Receipt Date: 20150217
  Transmission Date: 20150721
  Serious: No
  Sender: FDA-Public Use
  Company Number: US-ABBVIE-14K-163-1252253-00

PATIENT
  Age: 61 Year
  Sex: Female

DRUGS (20)
  1. AMLODIPINE [Concomitant]
     Active Substance: AMLODIPINE BESYLATE
     Indication: BLOOD PRESSURE
     Dosage: 10/20
  2. LEXAPRO [Concomitant]
     Active Substance: ESCITALOPRAM OXALATE
     Indication: DEPRESSION
  3. XIFAXAN [Concomitant]
     Active Substance: RIFAXIMIN
     Indication: DIARRHOEA INFECTIOUS
  4. VITAMIN D3 [Concomitant]
     Active Substance: CHOLECALCIFEROL
     Indication: GALLBLADDER DISORDER
  5. LIBRAX [Concomitant]
     Active Substance: CHLORDIAZEPOXIDE HYDROCHLORIDE\CLIDINIUM BROMIDE
     Indication: ABDOMINAL DISTENSION
  6. WELLBUTRIN [Concomitant]
     Active Substance: BUPROPION HYDROCHLORIDE
     Indication: DEPRESSION
  7. POTASSIUM [Concomitant]
     Active Substance: POTASSIUM
     Indication: PRODUCT USED FOR UNKNOWN INDICATION
     Dosage: A DAY IN AM
  8. CARAFATE [Concomitant]
     Active Substance: SUCRALFATE
     Indication: GASTRITIS
  9. HUMIRA [Suspect]
     Active Substance: ADALIMUMAB
     Indication: CROHN^S DISEASE
     Dates: start: 20140325
  10. AMBIEN [Concomitant]
     Active Substance: ZOLPIDEM TARTRATE
     Indication: INSOMNIA
     Dosage: AT NIGHT
  11. LEVEMIR [Concomitant]
     Active Substance: INSULIN DETEMIR
     Indication: DIABETES MELLITUS
     Dosage: DOSE VARIES WITH BLOOD SUGARS
  12. CRESTOR [Concomitant]
     Active Substance: ROSUVASTATIN CALCIUM
     Indication: HYPERLIPIDAEMIA
  13. BUDESONIDE. [Concomitant]
     Active Substance: BUDESONIDE
     Indication: PRODUCT USED FOR UNKNOWN INDICATION
  14. PROTONIX [Concomitant]
     Active Substance: PANTOPRAZOLE SODIUM
     Indication: GASTROOESOPHAGEAL REFLUX DISEASE
  15. FENTANYL. [Concomitant]
     Active Substance: FENTANYL
     Indication: PAIN
  16. VITAMIN D3 [Concomitant]
     Active Substance: CHOLECALCIFEROL
     Indication: PANCREATIC DISORDER
  17. DISTROLOL [Concomitant]
     Indication: BLOOD PRESSURE
  18. CODEINE [Concomitant]
     Active Substance: CODEINE
     Indication: ANALGESIC THERAPY
  19. NOVOLOG [Concomitant]
     Active Substance: INSULIN ASPART
     Indication: DIABETES MELLITUS
     Dosage: DOSE VARIES WITH BLOOD SUGARS
  20. PREON [Concomitant]
     Indication: PRODUCT USED FOR UNKNOWN INDICATION
     Dosage: BEFORE EVERY MEAL

REACTIONS (2)
  - Joint swelling [Not Recovered/Not Resolved]
  - Local swelling [Not Recovered/Not Resolved]

NARRATIVE: CASE EVENT DATE: 20140609
